FAERS Safety Report 4823011-0 (Version None)
Quarter: 2005Q4

REPORT INFORMATION
  Report Type: 
  Country: None (occurrence: None)
  Receive Date: 20051108
  Receipt Date: 20051108
  Transmission Date: 20060501
  Serious: Yes (Death)
  Sender: FDA-Public Use
  Company Number: None

PATIENT
  Sex: Female
  Weight: 70 kg

DRUGS (2)
  1. GEMZAR [Suspect]
     Dosage: SEE IMAGE
     Route: 042
     Dates: start: 20050919
  2. CAPECITABINE [Suspect]
     Dosage: SEE IMAGE
     Route: 048

REACTIONS (2)
  - LUNG NEOPLASM [None]
  - URINARY TRACT INFECTION [None]
